FAERS Safety Report 4954848-5 (Version None)
Quarter: 2006Q1

REPORT INFORMATION
  Report Type: 
  Country: None (occurrence: None)
  Receive Date: 20060327
  Receipt Date: 20060215
  Transmission Date: 20060701
  Serious: Yes (Death, Hospitalization)
  Sender: FDA-Public Use
  Company Number: GB-MERCK-0602GBR00090

PATIENT
  Age: 86 Year
  Sex: Female

DRUGS (8)
  1. VIOXX [Suspect]
     Indication: OSTEOARTHRITIS
     Route: 048
     Dates: start: 20040610, end: 20040624
  2. ACETAMINOPHEN AND PROPOXYPHENE HYDROCHLORIDE [Concomitant]
     Route: 065
  3. FERROUS SULFATE [Concomitant]
     Indication: ARTHROPATHY
     Route: 065
     Dates: start: 20031201
  4. ACETAMINOPHEN AND CODEINE PHOSPHATE [Concomitant]
     Indication: ARTHROPATHY
     Route: 065
     Dates: start: 20031201
  5. LEVOTHYROXINE SODIUM [Concomitant]
     Route: 065
  6. CEPHALEXIN [Concomitant]
     Indication: URINARY TRACT INFECTION
     Route: 065
     Dates: start: 20040610, end: 20040617
  7. AMILORIDE HYDROCHLORIDE AND FUROSEMIDE [Concomitant]
     Route: 065
  8. LANSOPRAZOLE [Concomitant]
     Route: 065

REACTIONS (3)
  - CEREBROVASCULAR ACCIDENT [None]
  - DEATH [None]
  - WHITE BLOOD CELL COUNT DECREASED [None]
